FAERS Safety Report 14993155 (Version 2)
Quarter: 2018Q2

REPORT INFORMATION
  Report Type: Spontaneous
  Country: ES (occurrence: ES)
  Receive Date: 20180610
  Receipt Date: 20180620
  Transmission Date: 20180711
  Serious: Yes (Other)
  Sender: FDA-Public Use
  Company Number: ES-MYLANLABS-2018M1038417

PATIENT
  Age: 53 Year
  Sex: Male

DRUGS (14)
  1. LANREOTIDE [Interacting]
     Active Substance: LANREOTIDE
     Indication: PARAGANGLION NEOPLASM
     Dosage: SYSTEMIC TREATMENT  EVERY 14 DAYS
     Dates: start: 201411, end: 2016
  2. DOXAZOSIN [Concomitant]
     Active Substance: DOXAZOSIN\DOXAZOSIN MESYLATE
     Indication: HYPERTENSION
     Dosage: 8 MG, QD
     Route: 065
     Dates: start: 2014
  3. TEMOZOLOMIDE. [Suspect]
     Active Substance: TEMOZOLOMIDE
     Indication: PARAGANGLION NEOPLASM
     Dosage: 75 MG/M2, CYCLE, 75 MG/M^2 FOR 21 DAYS EVERY 28 DAYS
     Route: 065
     Dates: start: 201605, end: 201707
  4. TEMOZOLOMIDE. [Suspect]
     Active Substance: TEMOZOLOMIDE
     Indication: PANCREATIC NEUROENDOCRINE TUMOUR METASTATIC
  5. LANREOTIDE [Interacting]
     Active Substance: LANREOTIDE
     Dosage: 120 MG, Q3W
     Dates: start: 2016, end: 201701
  6. TEMOZOLOMIDE. [Suspect]
     Active Substance: TEMOZOLOMIDE
     Indication: PARAGANGLION NEOPLASM MALIGNANT
  7. SOMATULINA [Suspect]
     Active Substance: LANREOTIDE ACETATE
     Indication: PARAGANGLION NEOPLASM MALIGNANT
  8. IRBESARTAN AND HYDROCHLOROTHIAZIDE [Concomitant]
     Active Substance: HYDROCHLOROTHIAZIDE\IRBESARTAN
     Indication: HYPERTENSION
     Dosage: IRBESARTAN/HYDROCHLOROTHIAZIDE (1250MG/12.5MG, RESPECTIVELY)
     Route: 065
  9. DENOSUMAB [Concomitant]
     Active Substance: DENOSUMAB
     Indication: PARAGANGLION NEOPLASM MALIGNANT
  10. PROPRANOLOL [Interacting]
     Active Substance: PROPRANOLOL HYDROCHLORIDE
     Dosage: 240 MG, QD,AN INCREASE DOSE UP TO 3 MG/KG/DAY (240 MG/DAY)
     Dates: start: 201605
  11. SOMATULINA [Suspect]
     Active Substance: LANREOTIDE ACETATE
     Indication: PANCREATIC NEUROENDOCRINE TUMOUR METASTATIC
     Dosage: 120 MG, UNK
     Route: 065
     Dates: start: 201411, end: 2016
  12. DENOSUMAB [Concomitant]
     Active Substance: DENOSUMAB
     Indication: PARAGANGLION NEOPLASM
     Dosage: 120 MG EVERY 28 DAYS
     Route: 065
  13. DENOSUMAB [Concomitant]
     Active Substance: DENOSUMAB
     Indication: PANCREATIC NEUROENDOCRINE TUMOUR METASTATIC
  14. PROPRANOLOL [Interacting]
     Active Substance: PROPRANOLOL HYDROCHLORIDE
     Indication: HYPERTENSION
     Dosage: 120 MG, QD
     Dates: start: 201506

REACTIONS (9)
  - Hyperglycaemia [Unknown]
  - Vomiting [Unknown]
  - Potentiating drug interaction [Unknown]
  - Thrombocytopenia [Unknown]
  - Inappropriate schedule of drug administration [Unknown]
  - Lymphopenia [Unknown]
  - Diarrhoea [Unknown]
  - Product use in unapproved indication [Unknown]
  - Nausea [Unknown]

NARRATIVE: CASE EVENT DATE: 2016
